FAERS Safety Report 18708529 (Version 2)
Quarter: 2021Q1

REPORT INFORMATION
  Report Type: Spontaneous
  Country: US (occurrence: US)
  Receive Date: 20210106
  Receipt Date: 20210201
  Transmission Date: 20210419
  Serious: Yes (Other)
  Sender: FDA-Public Use
  Company Number: US-BAYER-2021-008664

PATIENT
  Age: 48 Year

DRUGS (2)
  1. KOGENATE FS [Suspect]
     Active Substance: ANTIHEMOPHILIC FACTOR, HUMAN RECOMBINANT
     Dosage: INFUSED EVERY OTHER DAY FOR 5 DOSES DUE TO INJURED LEFT SIDE RIBS
     Dates: start: 202011, end: 202011
  2. KOGENATE FS [Suspect]
     Active Substance: ANTIHEMOPHILIC FACTOR, HUMAN RECOMBINANT
     Dosage: 2142 U

REACTIONS (2)
  - Fall [Recovered/Resolved]
  - Chest injury [Recovered/Resolved]

NARRATIVE: CASE EVENT DATE: 202011
